FAERS Safety Report 23969164 (Version 2)
Quarter: 2024Q2

REPORT INFORMATION
  Report Type: Spontaneous
  Country: ES (occurrence: None)
  Receive Date: 20240612
  Receipt Date: 20240625
  Transmission Date: 20240715
  Serious: Yes (Hospitalization)
  Sender: FDA-Public Use
  Company Number: 2024A131736

PATIENT
  Age: 81 Year
  Sex: Male

DRUGS (1)
  1. BUDESONIDE\FORMOTEROL\GLYCOPYRRONIUM [Suspect]
     Active Substance: BUDESONIDE\FORMOTEROL\GLYCOPYRRONIUM
     Indication: Chronic obstructive pulmonary disease
     Dosage: 5/7,2/160 MCG
     Route: 055

REACTIONS (17)
  - Anxiety [Recovered/Resolved]
  - Pyrexia [Recovered/Resolved]
  - Condition aggravated [Recovered/Resolved]
  - Insomnia [Unknown]
  - Cough [Unknown]
  - Dysphonia [Unknown]
  - Fungal infection [Unknown]
  - Infection [Unknown]
  - Malaise [Unknown]
  - Dysphagia [Unknown]
  - Chest discomfort [Unknown]
  - Nausea [Recovering/Resolving]
  - Bronchitis [Unknown]
  - Chills [Recovered/Resolved]
  - Intentional product misuse [Unknown]
  - Adverse event [Unknown]
  - Adverse reaction [Unknown]
